FAERS Safety Report 11497185 (Version 4)
Quarter: 2016Q4

REPORT INFORMATION
  Report Type: Report from Study
  Country: CA (occurrence: CA)
  Receive Date: 20150911
  Receipt Date: 20161026
  Transmission Date: 20170206
  Serious: Yes (Hospitalization, Other)
  Sender: FDA-Public Use
  Company Number: CA-AMGEN-CANSL2015090875

PATIENT
  Age: 64 Year
  Sex: Female

DRUGS (25)
  1. FOLIC ACID. [Concomitant]
     Active Substance: FOLIC ACID
     Indication: DYSPNOEA
     Dosage: UNK
  2. TRIAMTEREEN/HYDROCHLOORTHIAZIDE [Concomitant]
     Dosage: UNK
  3. FLEXERIL [Concomitant]
     Active Substance: CYCLOBENZAPRINE HYDROCHLORIDE
     Dosage: 10 MG, UNK
     Route: 048
  4. VENTOLIN [Concomitant]
     Active Substance: ALBUTEROL SULFATE
     Dosage: UNK
  5. RISEDRONATE [Concomitant]
     Active Substance: RISEDRONATE SODIUM
     Dosage: 35 MG, UNK
     Route: 048
  6. SOLUCAL [Concomitant]
     Dosage: 500 MG, UNK
     Route: 048
  7. ENBREL [Suspect]
     Active Substance: ETANERCEPT
     Indication: PSORIATIC ARTHROPATHY
     Dosage: 50 MG, UNK
     Route: 065
     Dates: start: 20040623
  8. DILAUDID [Concomitant]
     Active Substance: HYDROMORPHONE HYDROCHLORIDE
     Indication: ARTHRITIS
     Dosage: 2-4 MG PRN
     Route: 048
  9. IBUPROFEN. [Concomitant]
     Active Substance: IBUPROFEN
     Dosage: 400 MG, UNK
  10. PREGABALIN. [Concomitant]
     Active Substance: PREGABALIN
     Dosage: UNK
  11. PREDNISONE. [Concomitant]
     Active Substance: PREDNISONE
     Indication: SECRETION DISCHARGE
  12. PANTOLOC [Concomitant]
     Active Substance: PANTOPRAZOLE SODIUM
     Dosage: 40 MG, UNK
     Route: 048
  13. FLOVENT [Concomitant]
     Active Substance: FLUTICASONE PROPIONATE
     Dosage: UNK
  14. ENBREL [Suspect]
     Active Substance: ETANERCEPT
     Indication: PSORIASIS
     Dosage: 50 MG, UNK
     Route: 058
     Dates: start: 2005, end: 201510
  15. ENBREL [Suspect]
     Active Substance: ETANERCEPT
     Indication: RHEUMATOID ARTHRITIS
     Dosage: 50 MG, UNK
     Route: 065
     Dates: start: 201610
  16. LEUCOVORIN. [Concomitant]
     Active Substance: LEUCOVORIN
     Dosage: 5 MG UNK
     Route: 048
  17. ACETAMINOPHEN. [Concomitant]
     Active Substance: ACETAMINOPHEN
     Dosage: 500 MG, QID PRN
     Route: 048
  18. HYDROMORPH CONTIN [Concomitant]
     Active Substance: HYDROMORPHONE
     Dosage: UNK
  19. CALCIUM [Concomitant]
     Active Substance: CALCIUM
     Indication: DYSPNOEA
     Dosage: UNK
  20. OXAZEPAM. [Concomitant]
     Active Substance: OXAZEPAM
     Dosage: UNK
  21. CETRIZINE [Concomitant]
     Active Substance: CETIRIZINE HYDROCHLORIDE
     Dosage: UNK
  22. PREDNISONE. [Concomitant]
     Active Substance: PREDNISONE
     Indication: ARTHRITIS
     Dosage: UNK
  23. VITAMIN D [Concomitant]
     Active Substance: CHOLECALCIFEROL
     Indication: DYSPNOEA
     Dosage: 10000 MUL, UNK
     Route: 048
  24. AVAMYS [Concomitant]
     Active Substance: FLUTICASONE FUROATE
     Dosage: UNK
  25. QUETIAPINE. [Concomitant]
     Active Substance: QUETIAPINE
     Dosage: UNK

REACTIONS (14)
  - Pruritus [Unknown]
  - Angina pectoris [Unknown]
  - Lung neoplasm malignant [Unknown]
  - Arrhythmia [Unknown]
  - Adverse reaction [Unknown]
  - Pulmonary embolism [Unknown]
  - Bone disorder [Unknown]
  - Arthritis [Unknown]
  - Fracture [Unknown]
  - Pustular psoriasis [Unknown]
  - Lung disorder [Unknown]
  - Stress [Unknown]
  - Dyspnoea [Unknown]
  - Osteoporosis [Unknown]

NARRATIVE: CASE EVENT DATE: 2012
